FAERS Safety Report 12120299 (Version 8)
Quarter: 2016Q4

REPORT INFORMATION
  Report Type: Spontaneous
  Country: US (occurrence: US)
  Receive Date: 20160226
  Receipt Date: 20161020
  Transmission Date: 20170206
  Serious: Yes (Other)
  Sender: FDA-Public Use
  Company Number: US-LUNDBECK-DKLU2010348

PATIENT
  Age: 48 Year
  Sex: Female

DRUGS (5)
  1. NORTHERA [Suspect]
     Active Substance: DROXIDOPA
     Indication: AUTONOMIC NEUROPATHY
     Route: 065
     Dates: start: 201602
  2. NORTHERA [Suspect]
     Active Substance: DROXIDOPA
     Indication: SYNCOPE
     Route: 065
     Dates: start: 20160219
  3. NORTHERA [Suspect]
     Active Substance: DROXIDOPA
     Route: 065
     Dates: start: 20160215
  4. NORTHERA [Suspect]
     Active Substance: DROXIDOPA
     Route: 065
     Dates: start: 20160201
  5. NORTHERA [Suspect]
     Active Substance: DROXIDOPA
     Route: 065
     Dates: start: 20160513

REACTIONS (12)
  - Pulse abnormal [Unknown]
  - Hyperhidrosis [Unknown]
  - Dizziness [Unknown]
  - Cold sweat [Unknown]
  - Blood pressure decreased [Recovered/Resolved]
  - Condition aggravated [Unknown]
  - Intentional underdose [Recovered/Resolved]
  - Loss of consciousness [Unknown]
  - Fall [Unknown]
  - Vertigo [Recovering/Resolving]
  - Blood pressure diastolic increased [Unknown]
  - Blood pressure increased [Unknown]

NARRATIVE: CASE EVENT DATE: 201602
